FAERS Safety Report 9635191 (Version 1)
Quarter: 2013Q4

REPORT INFORMATION
  Report Type: Spontaneous
  Country: ES (occurrence: None)
  Receive Date: 20131017
  Receipt Date: 20131017
  Transmission Date: 20140711
  Serious: Yes (Life-Threatening)
  Sender: FDA-Public Use
  Company Number: FK201304545

PATIENT
  Age: 33 Year
  Sex: Female

DRUGS (5)
  1. OXYTOCIN [Suspect]
     Indication: UTERINE HYPOTONUS
     Dosage: ADMINISTERED IN PHYSICIOLOGICAL SERUM,
     Route: 041
  2. BETAMETHASONE [Concomitant]
  3. LABETALOL [Concomitant]
  4. BUPIVACAINE [Concomitant]
  5. LEVOBUPIVACAINE [Concomitant]

REACTIONS (5)
  - Acute pulmonary oedema [None]
  - Chest pain [None]
  - Hypotension [None]
  - Chest pain [None]
  - Exposure during pregnancy [None]
